FAERS Safety Report 9929373 (Version 1)
Quarter: 2014Q1

REPORT INFORMATION
  Report Type: Spontaneous
  Country: IT (occurrence: IT)
  Receive Date: 20140227
  Receipt Date: 20140227
  Transmission Date: 20141002
  Serious: Yes (Other)
  Sender: FDA-Public Use
  Company Number: PHHY2014IT023519

PATIENT
  Age: 34 Year
  Sex: Male

DRUGS (5)
  1. CARBAMAZEPINE [Suspect]
     Indication: EPILEPSY
     Dosage: 1600 MG, PER DAY
  2. TOPIRAMATE [Interacting]
     Indication: EPILEPSY
     Dosage: 50 MG, PER DAY
     Dates: start: 201306
  3. TOPIRAMATE [Interacting]
     Dosage: 200 MG, PER DAY
  4. TOPIRAMATE [Interacting]
     Dosage: 100 MG, BID
  5. LEVETIRACETAM [Suspect]
     Indication: EPILEPSY
     Dosage: 300 MG, PER DAY

REACTIONS (11)
  - Psychotic disorder [Recovered/Resolved]
  - Psychomotor hyperactivity [Recovered/Resolved]
  - Derealisation [Recovered/Resolved]
  - Depersonalisation [Recovered/Resolved]
  - Insomnia [Recovered/Resolved]
  - Anxiety [Recovered/Resolved]
  - Aggression [Recovered/Resolved]
  - Hallucination, visual [Recovered/Resolved]
  - Hallucination, auditory [Recovered/Resolved]
  - Partial seizures [Unknown]
  - Drug interaction [Unknown]
